FAERS Safety Report 10433759 (Version 2)
Quarter: 2014Q3

REPORT INFORMATION
  Report Type: Spontaneous
  Country: US (occurrence: US)
  Receive Date: 20140905
  Receipt Date: 20140905
  Transmission Date: 20150326
  Serious: Yes (Hospitalization, Other)
  Sender: FDA-Public Use
  Company Number: US-PFIZER INC-2013315485

PATIENT
  Age: 67 Year
  Sex: Male

DRUGS (7)
  1. ZIPRASIDONE HCL [Suspect]
     Active Substance: ZIPRASIDONE HYDROCHLORIDE
     Indication: HALLUCINATION
     Dosage: 20 MG, DAILY
     Route: 048
  2. DEPAKOTE [Concomitant]
     Active Substance: DIVALPROEX SODIUM
     Dosage: 1.25 G, DAILY
     Route: 048
  3. LEVODOPA-CARBIDOPA [Concomitant]
     Active Substance: CARBIDOPA\LEVODOPA
     Dosage: 25/100 MG 4 TIMES DAILY
  4. CLOZAPINE. [Concomitant]
     Active Substance: CLOZAPINE
     Dosage: 25 MG, DAILY
     Route: 048
  5. AMANTADINE [Concomitant]
     Active Substance: AMANTADINE
     Dosage: 200 MG, DAILY
     Route: 048
  6. TRAMADOL [Interacting]
     Active Substance: TRAMADOL
     Indication: ANALGESIC THERAPY
     Dosage: 100 MG, 3X/DAY
     Route: 048
  7. RASAGILINE [Interacting]
     Active Substance: RASAGILINE
     Dosage: 1 MG, DAILY

REACTIONS (24)
  - Gait disturbance [Unknown]
  - Myoclonus [Unknown]
  - Disorientation [Unknown]
  - Tachypnoea [Unknown]
  - Rhabdomyolysis [Unknown]
  - Hyperhidrosis [Unknown]
  - Resting tremor [Unknown]
  - Tachycardia [Unknown]
  - Back pain [Unknown]
  - Arthralgia [Unknown]
  - Neutrophilia [Unknown]
  - Chills [Unknown]
  - Potentiating drug interaction [Recovered/Resolved]
  - Hallucination [Unknown]
  - Dyskinesia [Unknown]
  - Blood creatine phosphokinase increased [Unknown]
  - Myoglobin urine present [Unknown]
  - Renal failure acute [Unknown]
  - Agitation [Unknown]
  - Gastrointestinal sounds abnormal [Unknown]
  - Serotonin syndrome [Recovered/Resolved]
  - Cold sweat [Unknown]
  - Hyperreflexia [Unknown]
  - Fall [Unknown]
